FAERS Safety Report 9342339 (Version 1)
Quarter: 2013Q2

REPORT INFORMATION
  Report Type: Report from Study
  Country: CA (occurrence: CA)
  Receive Date: 20130611
  Receipt Date: 20130611
  Transmission Date: 20140414
  Serious: Yes (Other)
  Sender: FDA-Public Use
  Company Number: CA-JNJFOC-20130417955

PATIENT
  Age: 23 Year
  Sex: Female
  Weight: 53.52 kg

DRUGS (3)
  1. REMICADE [Suspect]
     Indication: COLITIS ULCERATIVE
     Route: 042
     Dates: start: 20130327, end: 20130506
  2. IMURAN [Concomitant]
     Route: 065
  3. WARFARIN [Concomitant]
     Dosage: 2X2.5MG PILLS EVERY OTHER DAY
     Route: 065

REACTIONS (3)
  - Ileostomy [Unknown]
  - Drug ineffective [Unknown]
  - Condition aggravated [Recovering/Resolving]
